FAERS Safety Report 15279964 (Version 1)
Quarter: 2018Q3

REPORT INFORMATION
  Report Type: Spontaneous
  Country: US (occurrence: US)
  Receive Date: 20180730
  Receipt Date: 20180730
  Transmission Date: 20181010
  Serious: Yes (Disabling)
  Sender: FDA-Public Use
  Company Number: None

PATIENT
  Age: 60 Year
  Sex: Female

DRUGS (1)
  1. PROLIA [Suspect]
     Active Substance: DENOSUMAB
     Indication: OSTEOPOROSIS
     Route: 030
     Dates: start: 20180719, end: 20180719

REACTIONS (4)
  - Paraesthesia oral [None]
  - Dizziness [None]
  - Hypotension [None]
  - Vision blurred [None]

NARRATIVE: CASE EVENT DATE: 20180721
